FAERS Safety Report 14861694 (Version 1)
Quarter: 2018Q2

REPORT INFORMATION
  Report Type: Spontaneous
  Country: PL (occurrence: PL)
  Receive Date: 20180508
  Receipt Date: 20180508
  Transmission Date: 20180711
  Serious: Yes (Death, Life-Threatening, Hospitalization, Other)
  Sender: FDA-Public Use
  Company Number: PL-MYLANLABS-2018M1030866

PATIENT
  Age: 37 Year
  Sex: Female

DRUGS (11)
  1. CLOZAPINE. [Suspect]
     Active Substance: CLOZAPINE
     Indication: SCHIZOAFFECTIVE DISORDER
     Dosage: UNK
  2. CLOZAPINE. [Suspect]
     Active Substance: CLOZAPINE
     Dosage: 100 MG, QD
  3. CLOZAPINE. [Suspect]
     Active Substance: CLOZAPINE
     Dosage: 400 MG, UNK
  4. CLORAZEPATE [Concomitant]
     Active Substance: CLORAZEPATE DIPOTASSIUM
     Indication: SCHIZOAFFECTIVE DISORDER
     Dosage: 150 MG, QD
  5. DIAZEPAM. [Concomitant]
     Active Substance: DIAZEPAM
     Indication: SCHIZOAFFECTIVE DISORDER
     Dosage: UNK
  6. INDAPAMIDE. [Concomitant]
     Active Substance: INDAPAMIDE
     Indication: HYPERTENSION
     Dosage: UNK
  7. CLOZAPINE. [Suspect]
     Active Substance: CLOZAPINE
     Dosage: 100 MG, QD
  8. CLOZAPINE. [Suspect]
     Active Substance: CLOZAPINE
     Dosage: 175 MG, QD
  9. LITHIUM CARBONATE. [Concomitant]
     Active Substance: LITHIUM CARBONATE
     Indication: SCHIZOAFFECTIVE DISORDER
     Dosage: 1000 MG, QD
  10. BISOPROLOL [Concomitant]
     Active Substance: BISOPROLOL
     Indication: HYPERTENSION
     Dosage: UNK
  11. RAMIPRIL. [Concomitant]
     Active Substance: RAMIPRIL
     Indication: HYPERTENSION
     Dosage: UNK

REACTIONS (17)
  - Arteriosclerosis [Unknown]
  - Hepatic steatosis [Unknown]
  - Pulmonary oedema [Unknown]
  - Cardiopulmonary failure [Fatal]
  - Pancreatic fibrosis [Unknown]
  - Acute myocardial infarction [Fatal]
  - Orthostatic hypotension [Unknown]
  - Cardiac failure acute [Unknown]
  - Cardiac hypertrophy [Unknown]
  - Brain oedema [Unknown]
  - Toxicity to various agents [Unknown]
  - Cardiomegaly [Unknown]
  - Cardiac arrest [Fatal]
  - Schizoaffective disorder [Unknown]
  - Condition aggravated [Unknown]
  - Cardiomyopathy [Unknown]
  - Oesophagitis [Unknown]
